FAERS Safety Report 5061264-7 (Version None)
Quarter: 2006Q3

REPORT INFORMATION
  Report Type: 
  Country: None (occurrence: None)
  Receive Date: 20060720
  Receipt Date: 20060707
  Transmission Date: 20061208
  Serious: Yes (Other)
  Sender: FDA-Public Use
  Company Number: 2006078754

PATIENT
  Sex: Male

DRUGS (3)
  1. LYRICA [Suspect]
     Indication: DEPRESSION
     Dosage: 150 MG (150 MG, 1 IN 1 D), ORAL
     Route: 048
     Dates: start: 20060510, end: 20060529
  2. EDRONAX            (REBOXETINE) [Suspect]
     Indication: DEPRESSION
     Dosage: ORAL
     Route: 048
     Dates: start: 20060510, end: 20060529
  3. ZOLPIDEM TARTRATE [Concomitant]

REACTIONS (5)
  - BLOOD PRESSURE INCREASED [None]
  - DYSURIA [None]
  - HYPERTENSION [None]
  - URINARY RETENTION [None]
  - WEIGHT DECREASED [None]
